FAERS Safety Report 10046879 (Version 1)
Quarter: 2014Q1

REPORT INFORMATION
  Report Type: Spontaneous
  Country: AU (occurrence: AU)
  Receive Date: 20140331
  Receipt Date: 20140331
  Transmission Date: 20141002
  Serious: Yes (Disabling)
  Sender: FDA-Public Use
  Company Number: PHHY2014AU036999

PATIENT
  Sex: Female

DRUGS (6)
  1. ONBREZ [Suspect]
     Indication: CHRONIC OBSTRUCTIVE PULMONARY DISEASE
     Dosage: UNK
     Route: 055
  2. GALVUMET [Suspect]
     Indication: DIABETES MELLITUS
     Dosage: 50/1000
     Route: 048
  3. DIAMICRON [Concomitant]
     Indication: DIABETES MELLITUS
     Dosage: UNK
  4. VENTOLIN [Concomitant]
     Indication: CHRONIC OBSTRUCTIVE PULMONARY DISEASE
     Dosage: UNK
  5. SPIRIVA [Concomitant]
     Indication: CHRONIC OBSTRUCTIVE PULMONARY DISEASE
     Dosage: UNK
  6. FLIXOTIDE [Concomitant]
     Indication: CHRONIC OBSTRUCTIVE PULMONARY DISEASE
     Dosage: UNK

REACTIONS (2)
  - Hyperhidrosis [Not Recovered/Not Resolved]
  - Glycosylated haemoglobin increased [Unknown]
